FAERS Safety Report 8082698-2 (Version None)
Quarter: 2012Q1

REPORT INFORMATION
  Report Type: 
  Country: None (occurrence: None)
  Receive Date: 20120127
  Receipt Date: 20110308
  Transmission Date: 20120608
  Serious: No
  Sender: FDA-Public Use
  Company Number: US-ABBOTT-11P-163-0707602-00

PATIENT
  Age: 22 Year
  Sex: Female

DRUGS (5)
  1. HUMIRA [Suspect]
     Indication: CROHN'S DISEASE
     Dates: start: 20090101
  2. NUVARING [Concomitant]
     Indication: CONTRACEPTION
  3. GENERIC XANAX [Concomitant]
     Indication: ANXIETY
  4. MULTI-VITAMIN [Concomitant]
     Indication: PRODUCT USED FOR UNKNOWN INDICATION
  5. TOPROL-XL [Concomitant]
     Indication: VENTRICULAR EXTRASYSTOLES
     Dosage: DAILY

REACTIONS (5)
  - PRODUCT QUALITY ISSUE [None]
  - PRODUCT TAMPERING [None]
  - DRUG EFFECT DECREASED [None]
  - FREQUENT BOWEL MOVEMENTS [None]
  - ABDOMINAL PAIN [None]
